FAERS Safety Report 13058183 (Version 2)
Quarter: 2017Q1

REPORT INFORMATION
  Report Type: Spontaneous
  Country: JP (occurrence: JP)
  Receive Date: 20161223
  Receipt Date: 20170113
  Transmission Date: 20170428
  Serious: Yes (Other)
  Sender: FDA-Public Use
  Company Number: JP-AMGEN-JPNSP2016181762

PATIENT
  Age: 72 Year
  Sex: Male

DRUGS (4)
  1. CABAZITAXEL ACETONE [Suspect]
     Active Substance: CABAZITAXEL
     Indication: HORMONE-REFRACTORY PROSTATE CANCER
     Dosage: 20 MG/M2, UNK
     Route: 041
  2. G-LASTA [Suspect]
     Active Substance: PEGFILGRASTIM
     Dosage: UNK, ON DAY 2 OF CYCLE 2-5
     Route: 058
  3. G-LASTA [Suspect]
     Active Substance: PEGFILGRASTIM
     Indication: COLONY STIMULATING FACTOR PROPHYLAXIS
     Dosage: UNK, ON DAY 3 OF CYCLE 1
     Route: 058
  4. CABAZITAXEL ACETONE [Suspect]
     Active Substance: CABAZITAXEL
     Dosage: 17.5 MG/M2, UNK
     Route: 041

REACTIONS (3)
  - Neutrophil count decreased [Unknown]
  - Febrile neutropenia [Recovered/Resolved]
  - Colony stimulating factor therapy [Unknown]
